FAERS Safety Report 9571435 (Version 1)
Quarter: 2013Q1

REPORT INFORMATION
  Report Type: Spontaneous
  Country: US (occurrence: None)
  Receive Date: 20120709
  Receipt Date: 20120709
  Transmission Date: 20140127
  Serious: Yes (Hospitalization)
  Sender: FDA-Public Use
  Company Number: PHEH2011US01188

PATIENT
  Age: 86 Year
  Sex: Male
  Weight: 107.9 kg

DRUGS (1)
  1. GLEEVEC (IMATINIB) UNKNOWN [Suspect]
     Indication: CHRONIC MYELOID LEUKAEMIA
     Dosage: 400 MG, BID, ORAL
     Route: 048
     Dates: start: 20110228, end: 20110818

REACTIONS (4)
  - Cellulitis [None]
  - Fatigue [None]
  - Chills [None]
  - Diarrhoea [None]
